FAERS Safety Report 9419138 (Version 3)
Quarter: 2013Q4

REPORT INFORMATION
  Report Type: Report from Study
  Country: GB (occurrence: GB)
  Receive Date: 20130725
  Receipt Date: 20131023
  Transmission Date: 20140711
  Serious: Yes (Life-Threatening, Hospitalization)
  Sender: FDA-Public Use
  Company Number: GB-NOVOPROD-376772

PATIENT
  Age: 72 Year
  Sex: Male
  Weight: 97.1 kg

DRUGS (2)
  1. LIRAGLUTIDE FLEXPEN [Suspect]
     Indication: TYPE 2 DIABETES MELLITUS
     Dosage: 1.8 MG, QD
     Route: 058
     Dates: start: 20120315, end: 20130425
  2. LIRAGLUTIDE FLEXPEN [Suspect]
     Dosage: 1.8 MG, QD
     Route: 058
     Dates: start: 20130704

REACTIONS (2)
  - Dysentery [Recovered/Resolved]
  - Sepsis [Recovered/Resolved]
